FAERS Safety Report 16495272 (Version 3)
Quarter: 2019Q4

REPORT INFORMATION
  Report Type: Spontaneous
  Country: US (occurrence: US)
  Receive Date: 20190628
  Receipt Date: 20191231
  Transmission Date: 20200122
  Serious: No
  Sender: FDA-Public Use
  Company Number: US-BAUSCH-BL-2019-017596

PATIENT
  Sex: Female

DRUGS (1)
  1. LUMIFY [Suspect]
     Active Substance: BRIMONIDINE TARTRATE
     Indication: OCULAR HYPERAEMIA
     Route: 065

REACTIONS (5)
  - Eye irritation [Unknown]
  - Condition aggravated [Unknown]
  - Ocular hyperaemia [Unknown]
  - Dry eye [Unknown]
  - Eye pain [Unknown]
